FAERS Safety Report 6153768-0 (Version None)
Quarter: 2009Q2

REPORT INFORMATION
  Report Type: 
  Country: None (occurrence: None)
  Receive Date: 20090410
  Receipt Date: 20090402
  Transmission Date: 20091009
  Serious: Yes (Hospitalization, Other)
  Sender: FDA-Public Use
  Company Number: 014378

PATIENT
  Age: 42 Year
  Sex: Female

DRUGS (5)
  1. VERAPAMIL HCL [Suspect]
     Indication: MIGRAINE
     Dosage: 360 MG, SINGLE
  2. TOPIRAMATE [Concomitant]
  3. SUMATRIPTAN SUCCINATE [Concomitant]
  4. AMITRIPTYLINE HYDROCHLORIDE [Concomitant]
  5. FIORICET [Concomitant]

REACTIONS (10)
  - ACCIDENTAL OVERDOSE [None]
  - ATRIOVENTRICULAR BLOCK COMPLETE [None]
  - BLOOD PRESSURE SYSTOLIC DECREASED [None]
  - HEADACHE [None]
  - HYPERGLYCAEMIA [None]
  - METABOLIC ACIDOSIS [None]
  - NAUSEA [None]
  - PALPITATIONS [None]
  - RESPIRATORY FAILURE [None]
  - UNRESPONSIVE TO STIMULI [None]
